FAERS Safety Report 20207674 (Version 1)
Quarter: 2021Q4

REPORT INFORMATION
  Report Type: Spontaneous
  Country: CN (occurrence: CN)
  Receive Date: 20211220
  Receipt Date: 20211220
  Transmission Date: 20220304
  Serious: Yes (Disabling)
  Sender: FDA-Public Use
  Company Number: CN-PFIZER INC-202101771097

PATIENT
  Age: 37 Year
  Sex: Female
  Weight: 59.5 kg

DRUGS (1)
  1. METHOTREXATE [Suspect]
     Active Substance: METHOTREXATE
     Indication: Ectopic pregnancy
     Dosage: 23 MG, 1X/DAY
     Route: 030
     Dates: start: 20210526, end: 20210530

REACTIONS (6)
  - Rash [Recovering/Resolving]
  - Diarrhoea [Recovering/Resolving]
  - Mouth ulceration [Recovering/Resolving]
  - Hepatic function abnormal [Recovering/Resolving]
  - Blister [Recovering/Resolving]
  - Off label use [Recovered/Resolved]

NARRATIVE: CASE EVENT DATE: 20210526
